FAERS Safety Report 17528943 (Version 1)
Quarter: 2020Q1

REPORT INFORMATION
  Report Type: Spontaneous
  Country: US (occurrence: US)
  Receive Date: 20200312
  Receipt Date: 20200312
  Transmission Date: 20200409
  Serious: No
  Sender: FDA-Public Use
  Company Number: US-GLAXOSMITHKLINE-US2020040887

PATIENT
  Age: 76 Year
  Sex: Male

DRUGS (2)
  1. FLONASE SENSIMIST ALLERGY RELIEF [Suspect]
     Active Substance: FLUTICASONE FUROATE
     Indication: HYPERSENSITIVITY
     Dosage: UNK, 2 SPRAY
     Dates: start: 202002, end: 202002
  2. FLONASE SENSIMIST ALLERGY RELIEF [Suspect]
     Active Substance: FLUTICASONE FUROATE
     Indication: SINUS DISORDER

REACTIONS (5)
  - Burning sensation [Recovered/Resolved]
  - Expired product administered [Unknown]
  - Product use in unapproved indication [Unknown]
  - Off label use [Unknown]
  - Sneezing [Recovered/Resolved]

NARRATIVE: CASE EVENT DATE: 202002
